FAERS Safety Report 9580658 (Version 1)
Quarter: 2013Q3

REPORT INFORMATION
  Report Type: Spontaneous
  Country: US (occurrence: None)
  Receive Date: 20130916
  Receipt Date: 20130916
  Transmission Date: 20140515
  Serious: Yes (Hospitalization)
  Sender: FDA-Public Use
  Company Number: JPI-P-030615

PATIENT
  Age: 45 Year
  Sex: Female
  Weight: 89.81 kg

DRUGS (18)
  1. XYREM (500 MILLIGRAM/MILLILITERS, SOLUTION) (SODIUM OXYBATE) [Suspect]
     Indication: CATAPLEXY
     Route: 048
     Dates: start: 201103
  2. SIMVASTATIN [Suspect]
     Indication: PRODUCT USED FOR UNKNOWN INDICATION
  3. VARENICLINE TARTRATE [Concomitant]
  4. GABAPENTIN [Concomitant]
  5. ARMODAFINIL [Concomitant]
  6. MULTIVITAMINS [Concomitant]
  7. STOOL STOFTENER [Concomitant]
  8. HEART MEDICATIONS [Concomitant]
  9. BLOOD PRESSURE MEDICATIONS [Concomitant]
  10. VITAMIN C [Concomitant]
  11. ATEN OLOL [Concomitant]
  12. CALCIUM [Concomitant]
  13. VITAMIN B12 [Concomitant]
  14. DOCUSATE [Concomitant]
  15. FEXOFENADINE [Concomitant]
  16. IBUPROFEN [Concomitant]
  17. LISINOPRIL [Concomitant]
  18. HYDROCHLOORTHIAZIDE [Concomitant]

REACTIONS (3)
  - Hallucination [None]
  - Feeling abnormal [None]
  - Confusional state [None]
